FAERS Safety Report 4930661-X (Version None)
Quarter: 2006Q1

REPORT INFORMATION
  Report Type: 
  Country: None (occurrence: None)
  Receive Date: 20060227
  Receipt Date: 20060215
  Transmission Date: 20060701
  Serious: Yes (Death, Other)
  Sender: FDA-Public Use
  Company Number: HQWYE699107FEB06

PATIENT
  Sex: 0

DRUGS (1)
  1. CORDARONE [Suspect]
     Dosage: INTRAVENOUS
     Route: 042

REACTIONS (1)
  - PULMONARY OEDEMA [None]
